FAERS Safety Report 15920432 (Version 2)
Quarter: 2019Q1

REPORT INFORMATION
  Report Type: Report from Study
  Country: MX (occurrence: MX)
  Receive Date: 20190205
  Receipt Date: 20190219
  Transmission Date: 20190417
  Serious: Yes (Other)
  Sender: FDA-Public Use
  Company Number: PHHY2019MX026568

PATIENT
  Age: 81 Year
  Sex: Male
  Weight: 79 kg

DRUGS (3)
  1. CO-DIOVAN [Suspect]
     Active Substance: HYDROCHLOROTHIAZIDE\VALSARTAN
     Indication: HYPERTENSION
     Dosage: 1 DF (HYDROCHLOROTHIAZIDE 25 MG, VALSARTAN 320 MG), QD
     Route: 048
  2. INSULIN [Concomitant]
     Active Substance: INSULIN NOS
     Indication: DIABETES MELLITUS
     Dosage: 40 IU, UNK (20 U IN THE MORNING AND 20 U IN NIGHT) (3 YEARS AGO)
     Route: 059
  3. METFORMIN [Concomitant]
     Active Substance: METFORMIN HYDROCHLORIDE
     Indication: DIABETES MELLITUS
     Dosage: 2 DF, QD (1 IN MORNING 1 IN NIGHT) (25 YEARS AGO)
     Route: 048

REACTIONS (2)
  - Vocal cord paralysis [Not Recovered/Not Resolved]
  - Vocal cord neoplasm [Not Recovered/Not Resolved]

NARRATIVE: CASE EVENT DATE: 201812
